FAERS Safety Report 14255962 (Version 4)
Quarter: 2018Q4

REPORT INFORMATION
  Report Type: Spontaneous
  Country: ES (occurrence: ES)
  Receive Date: 20171206
  Receipt Date: 20181210
  Transmission Date: 20190204
  Serious: Yes (Death)
  Sender: FDA-Public Use
  Company Number: ES-ASTRAZENECA-2017SF23381

PATIENT
  Age: 89 Year
  Sex: Female

DRUGS (5)
  1. OMEPRAZOL [Suspect]
     Active Substance: OMEPRAZOLE
     Indication: PROPHYLAXIS AGAINST GASTROINTESTINAL ULCER
     Route: 048
     Dates: start: 2017
  2. TRANGOREX [Interacting]
     Active Substance: AMIODARONE HYDROCHLORIDE
     Indication: ARRHYTHMIA
     Dosage: 100 MG EXCEPT THURSDAYS AND SUNDAYS
     Route: 048
     Dates: start: 2017
  3. TRANGOREX [Interacting]
     Active Substance: AMIODARONE HYDROCHLORIDE
     Indication: ARRHYTHMIA
     Dosage: 100 MG EXCEPT THURSDAYS AND SUNDAYS
     Route: 048
     Dates: start: 2017
  4. DIFLUCAN [Interacting]
     Active Substance: FLUCONAZOLE
     Indication: ORAL CANDIDIASIS
     Route: 048
     Dates: start: 201704
  5. QUETIAPINE FUMARATE. [Interacting]
     Active Substance: QUETIAPINE FUMARATE
     Indication: MIXED DEMENTIA
     Route: 048
     Dates: start: 201704

REACTIONS (2)
  - Drug interaction [Fatal]
  - Cardiac failure [Fatal]

NARRATIVE: CASE EVENT DATE: 201705
